FAERS Safety Report 21743093 (Version 2)
Quarter: 2022Q4

REPORT INFORMATION
  Report Type: Report from Study
  Country: US (occurrence: US)
  Receive Date: 20221217
  Receipt Date: 20221230
  Transmission Date: 20230113
  Serious: No
  Sender: FDA-Public Use
  Company Number: US-ABBVIE-4240253

PATIENT
  Sex: Male

DRUGS (4)
  1. VENCLEXTA [Suspect]
     Active Substance: VENETOCLAX
     Indication: Chronic lymphocytic leukaemia
     Dosage: FORMS STRENGTH: 10 MILLIGRAM?TAKE BY MOUTH DAILY TWO 10 MG TAB 7 DAYS
     Route: 048
  2. VENCLEXTA [Suspect]
     Active Substance: VENETOCLAX
     Indication: Chronic lymphocytic leukaemia
     Route: 048
  3. VENCLEXTA [Suspect]
     Active Substance: VENETOCLAX
     Indication: Chronic lymphocytic leukaemia
     Dosage: 100 MILLIGRAM TAB 7 DAYS WITH FOOD. ?FORM STRENGTH: 100 MILLIGRAM
     Route: 048
  4. VENCLEXTA [Suspect]
     Active Substance: VENETOCLAX
     Indication: Chronic lymphocytic leukaemia
     Dosage: ONE 50 MG TABLET 7 DAYS
     Route: 048

REACTIONS (2)
  - Feeling abnormal [Unknown]
  - Platelet count decreased [Recovering/Resolving]
